FAERS Safety Report 14156464 (Version 1)
Quarter: 2017Q4

REPORT INFORMATION
  Report Type: Spontaneous
  Country: GB (occurrence: GB)
  Receive Date: 20171103
  Receipt Date: 20171103
  Transmission Date: 20180321
  Serious: Yes (Other)
  Sender: FDA-Public Use
  Company Number: GB-ALKEM LABORATORIES LIMITED-GB-ALKEM-2017-00650

PATIENT

DRUGS (2)
  1. CO-AMOXICLAV [Concomitant]
     Active Substance: AMOXICILLIN\CLAVULANIC ACID
     Indication: KIDNEY INFECTION
     Dosage: 625 MG, UNK
     Route: 048
     Dates: start: 20170915, end: 20170918
  2. CEPHALEXIN. [Suspect]
     Active Substance: CEPHALEXIN
     Indication: KIDNEY INFECTION
     Dosage: 500 MG ONCE TOTAL
     Route: 048
     Dates: start: 20170919, end: 20170919

REACTIONS (3)
  - Paraesthesia [Recovered/Resolved]
  - Hypoaesthesia [Recovered/Resolved]
  - Panic reaction [Recovered/Resolved]

NARRATIVE: CASE EVENT DATE: 20170919
